FAERS Safety Report 8580265-5 (Version None)
Quarter: 2012Q3

REPORT INFORMATION
  Report Type: 
  Country: None (occurrence: None)
  Receive Date: 20120808
  Receipt Date: 20120203
  Transmission Date: 20120928
  Serious: Yes (Other)
  Sender: FDA-Public Use
  Company Number: CHPA2012US013143

PATIENT
  Sex: Female

DRUGS (2)
  1. EXCEDRIN EXTRA STRENGTH TABLETS [Suspect]
     Indication: FIBROMYALGIA
     Dosage: 2-4 PILLS PER DAY, PRN, FOR YEARS
     Route: 048
  2. STEROIDS NOS [Concomitant]
     Dosage: UNK, UNK

REACTIONS (3)
  - DRUG DEPENDENCE [None]
  - OFF LABEL USE [None]
  - DRUG INEFFECTIVE [None]
